FAERS Safety Report 6198257-2 (Version None)
Quarter: 2009Q2

REPORT INFORMATION
  Report Type: 
  Country: None (occurrence: None)
  Receive Date: 20090518
  Receipt Date: 20080325
  Transmission Date: 20091009
  Serious: Yes (Hospitalization)
  Sender: FDA-Public Use
  Company Number: WAES 0803USA04094

PATIENT
  Age: 64 Year
  Sex: Male

DRUGS (2)
  1. CRIXIVAN [Suspect]
     Indication: HIV INFECTION
     Dosage: 800 MG/TID/PO
     Route: 048
     Dates: start: 19910101
  2. COMBIVIR [Concomitant]

REACTIONS (4)
  - DYSGEUSIA [None]
  - DYSPEPSIA [None]
  - NEPHROLITHIASIS [None]
  - PRODUCT QUALITY ISSUE [None]
